FAERS Safety Report 9686997 (Version 3)
Quarter: 2015Q2

REPORT INFORMATION
  Report Type: Spontaneous
  Country: IN (occurrence: IN)
  Receive Date: 20131113
  Receipt Date: 20150602
  Transmission Date: 20150821
  Serious: Yes (Other)
  Sender: FDA-Public Use
  Company Number: GXKR2006IN07187

PATIENT
  Age: 65 Year
  Sex: Male

DRUGS (4)
  1. LOSARTAN [Suspect]
     Active Substance: LOSARTAN
     Dosage: 50 MG, PER DAY
     Route: 065
  2. LOSARTAN [Suspect]
     Active Substance: LOSARTAN
     Indication: HYPERTENSION
     Dosage: 25 MG, PER DAY
     Route: 065
  3. LEVODOPA-CARBIDOPA [Concomitant]
     Active Substance: CARBIDOPA\LEVODOPA
     Indication: PARKINSON^S DISEASE
     Dosage: 1 DF, BID
     Route: 065
  4. LOSARTAN [Suspect]
     Active Substance: LOSARTAN
     Dosage: 25 MG, PER DAY
     Route: 065

REACTIONS (6)
  - Muscle rigidity [Recovering/Resolving]
  - Bradykinesia [Recovering/Resolving]
  - Parkinsonism [Recovering/Resolving]
  - Tremor [Recovering/Resolving]
  - Fall [Recovering/Resolving]
  - Freezing phenomenon [Recovering/Resolving]
